FAERS Safety Report 23772742 (Version 1)
Quarter: 2024Q2

REPORT INFORMATION
  Report Type: Spontaneous
  Country: US (occurrence: None)
  Receive Date: 20240422
  Receipt Date: 20240422
  Transmission Date: 20240715
  Serious: No
  Sender: FDA-Public Use
  Company Number: None

PATIENT
  Age: 90 Year
  Sex: Male
  Weight: 91 kg

DRUGS (1)
  1. NUZYRA [Suspect]
     Active Substance: OMADACYCLINE
     Indication: Enterococcal infection
     Dosage: FREQUENCY : DAILY;?
     Route: 048
     Dates: start: 20230308, end: 20240418

REACTIONS (1)
  - Death [None]

NARRATIVE: CASE EVENT DATE: 20240418
